FAERS Safety Report 7312651-5 (Version None)
Quarter: 2011Q1

REPORT INFORMATION
  Report Type: 
  Country: None (occurrence: None)
  Receive Date: 20110224
  Receipt Date: 20101201
  Transmission Date: 20110831
  Serious: No
  Sender: FDA-Public Use
  Company Number: US-MYLANLABS-2010S1022154

PATIENT
  Age: 60 Year
  Sex: Female

DRUGS (5)
  1. HYDROCODONE BITARTRATE [Concomitant]
     Indication: BACK PAIN
     Route: 048
  2. LANSOPRAZOLE [Suspect]
     Indication: GASTROOESOPHAGEAL REFLUX DISEASE
     Route: 048
     Dates: start: 20101101
  3. PROVENTIL [Concomitant]
     Indication: ASTHMA
     Route: 055
  4. ACCOLATE [Concomitant]
     Route: 048
  5. GLYBURIDE [Concomitant]
     Indication: DIABETES MELLITUS
     Route: 048

REACTIONS (1)
  - NAUSEA [None]
